FAERS Safety Report 22917419 (Version 2)
Quarter: 2023Q4

REPORT INFORMATION
  Report Type: Spontaneous
  Country: DE (occurrence: DE)
  Receive Date: 20230907
  Receipt Date: 20231219
  Transmission Date: 20240110
  Serious: Yes (Death, Other)
  Sender: FDA-Public Use
  Company Number: DE-009507513-2309DEU001377

PATIENT
  Age: 85 Year
  Sex: Male

DRUGS (1)
  1. PEMBROLIZUMAB [Suspect]
     Active Substance: PEMBROLIZUMAB
     Indication: Hypopharyngeal cancer
     Dosage: UNK
     Dates: start: 202001

REACTIONS (8)
  - Death [Fatal]
  - Tracheostomy [Unknown]
  - Gastrostomy [Unknown]
  - Tumour pseudoprogression [Unknown]
  - Malignant neoplasm progression [Unknown]
  - Dysphagia [Unknown]
  - Weight increased [Unknown]
  - Dyspnoea [Unknown]

NARRATIVE: CASE EVENT DATE: 20200301
